FAERS Safety Report 7392651-X (Version None)
Quarter: 2011Q1

REPORT INFORMATION
  Report Type: 
  Country: None (occurrence: None)
  Receive Date: 20110330
  Receipt Date: 20110330
  Transmission Date: 20110831
  Serious: Yes (Death)
  Sender: FDA-Public Use
  Company Number: None

PATIENT
  Age: 77 Year
  Sex: Male
  Weight: 64.4108 kg

DRUGS (11)
  1. ATENOLOL [Concomitant]
  2. LIPITOR [Concomitant]
  3. ASPIRIN [Concomitant]
  4. ASCORBIC ACID [Concomitant]
  5. MULTIPLE VITAMINS-MINERALS -DIASENSE MULTIVITAMIN [Concomitant]
  6. NIACIN, ANTIHYPERLIPIDEMIC, -NIASPAN- [Concomitant]
  7. PLACEBO [Suspect]
  8. NORMAL SALINE NASAL SPRAY [Concomitant]
  9. TRICOR [Concomitant]
  10. WARFARIN SODIUM [Suspect]
  11. FERROUS SULFATE -IRON SUPPLEMENT [Concomitant]

REACTIONS (6)
  - INTERNATIONAL NORMALISED RATIO INCREASED [None]
  - ENTEROBACTER PNEUMONIA [None]
  - INTERNATIONAL NORMALISED RATIO DECREASED [None]
  - REFUSAL OF TREATMENT BY RELATIVE [None]
  - PNEUMOTHORAX [None]
  - RESPIRATORY FAILURE [None]
